FAERS Safety Report 9279329 (Version 4)
Quarter: 2017Q1

REPORT INFORMATION
  Report Type: Report from Study
  Country: US (occurrence: US)
  Receive Date: 20130508
  Receipt Date: 20170222
  Transmission Date: 20170429
  Serious: Yes (Life-Threatening, Hospitalization, Disabling, Other)
  Sender: FDA-Public Use
  Company Number: US-ALEXION PHARMACEUTICALS INC.-A201300966

PATIENT
  Age: 19 Year
  Sex: Male

DRUGS (3)
  1. ECULIZUMAB [Suspect]
     Active Substance: ECULIZUMAB
     Indication: HAEMOLYTIC URAEMIC SYNDROME
     Dosage: 1200 MG, Q2W
     Route: 042
     Dates: start: 20130410
  2. CLONIDINE. [Concomitant]
     Active Substance: CLONIDINE
     Indication: BLOOD PRESSURE MEASUREMENT
     Dosage: UNK
     Route: 065
  3. AMLODIPINE                         /00972403/ [Concomitant]
     Indication: BLOOD PRESSURE MEASUREMENT
     Dosage: UNK
     Route: 065

REACTIONS (1)
  - Renal impairment [Recovered/Resolved]

NARRATIVE: CASE EVENT DATE: 20130424
